FAERS Safety Report 6013885-2 (Version None)
Quarter: 2008Q4

REPORT INFORMATION
  Report Type: 
  Country: None (occurrence: None)
  Receive Date: 20081219
  Receipt Date: 20080929
  Transmission Date: 20090506
  Serious: No
  Sender: FDA-Public Use
  Company Number: A0745949A

PATIENT
  Age: 6 Year
  Sex: Male
  Weight: 25.5 kg

DRUGS (2)
  1. FLOVENT [Suspect]
     Indication: ASTHMA
     Dosage: 50MCG TWICE PER DAY
     Route: 055
     Dates: start: 20080501, end: 20080902
  2. ADVAIR DISKUS 250/50 [Concomitant]
     Route: 055
     Dates: start: 20080331, end: 20080501

REACTIONS (1)
  - DENTAL CARIES [None]
